FAERS Safety Report 26180496 (Version 1)
Quarter: 2025Q4

REPORT INFORMATION
  Report Type: Spontaneous
  Country: US (occurrence: US)
  Receive Date: 20251219
  Receipt Date: 20251219
  Transmission Date: 20260118
  Serious: No
  Sender: INSUD PHARMA
  Company Number: US-INSUD PHARMA-2512US10232

PATIENT

DRUGS (2)
  1. TESTOSTERONE [Suspect]
     Active Substance: TESTOSTERONE
     Indication: Blood testosterone decreased
     Dosage: 4 PUMPS TO THE SKIN, QD
     Route: 061
     Dates: start: 202512
  2. TESTOSTERONE [Suspect]
     Active Substance: TESTOSTERONE
     Dosage: 4 PUMPS TO THE SKIN, QD
     Route: 061
     Dates: start: 202406

REACTIONS (5)
  - Skin discolouration [Not Recovered/Not Resolved]
  - Suspected product quality issue [Unknown]
  - Product residue present [Unknown]
  - Product substitution issue [Unknown]
  - Product dose omission issue [Unknown]

NARRATIVE: CASE EVENT DATE: 20251201
